FAERS Safety Report 5910429-8 (Version None)
Quarter: 2008Q4

REPORT INFORMATION
  Report Type: 
  Country: None (occurrence: None)
  Receive Date: 20081006
  Receipt Date: 20081006
  Transmission Date: 20090506
  Serious: Yes (Life-Threatening)
  Sender: FDA-Public Use
  Company Number: None

PATIENT
  Age: 68 Year
  Sex: Female
  Weight: 96.1626 kg

DRUGS (1)
  1. TIZANIDINE HCL [Suspect]
     Indication: MUSCLE SPASMS
     Dosage: 1 TAB BID PO  ONLY ONCE
     Route: 048
     Dates: start: 20080305, end: 20080305

REACTIONS (1)
  - DYSPNOEA [None]
